FAERS Safety Report 13049958 (Version 4)
Quarter: 2017Q1

REPORT INFORMATION
  Report Type: Spontaneous
  Country: FR (occurrence: FR)
  Receive Date: 20161221
  Receipt Date: 20170313
  Transmission Date: 20170428
  Serious: Yes (Death, Hospitalization, Other)
  Sender: FDA-Public Use
  Company Number: FR-ACTELION-A-CH2016-147082

PATIENT
  Age: 78 Year
  Sex: Female
  Weight: 55 kg

DRUGS (10)
  1. TEMESTA [Concomitant]
     Active Substance: LORAZEPAM
     Dosage: UNK
  2. VELETRI [Suspect]
     Active Substance: EPOPROSTENOL
     Indication: PULMONARY ARTERIAL HYPERTENSION
     Dosage: 27 NG, UNK
     Route: 042
     Dates: start: 20120612, end: 20161107
  3. FUROSEMIDE. [Concomitant]
     Active Substance: FUROSEMIDE
     Dosage: 1000 MG, QD
  4. SOLUPRED [Concomitant]
     Active Substance: PREDNISOLONE
     Dosage: 20 MG, OD
  5. ADCIRCA [Concomitant]
     Active Substance: TADALAFIL
     Dosage: 20 UNK, BID
  6. PREVISCAN [Concomitant]
     Active Substance: FLUINDIONE
     Dosage: 25 MG, OD
  7. TRACLEER [Concomitant]
     Active Substance: BOSENTAN
     Indication: PULMONARY ARTERIAL HYPERTENSION
     Dosage: 125 MG, BID
     Route: 048
  8. DIFFU-K [Concomitant]
     Active Substance: POTASSIUM CHLORIDE
  9. ALDACTONE [Concomitant]
     Active Substance: SPIRONOLACTONE
     Dosage: 75 UNK, OD
  10. SERESTA [Concomitant]
     Active Substance: OXAZEPAM
     Dosage: 10 MG, UNK

REACTIONS (6)
  - Diarrhoea [Not Recovered/Not Resolved]
  - Blood potassium increased [Recovered/Resolved]
  - Cardiopulmonary failure [Fatal]
  - Haemoglobin decreased [Unknown]
  - C-reactive protein increased [Unknown]
  - Blood potassium decreased [Recovered/Resolved]

NARRATIVE: CASE EVENT DATE: 20161026
